FAERS Safety Report 5754368-4 (Version None)
Quarter: 2008Q2

REPORT INFORMATION
  Report Type: 
  Country: None (occurrence: None)
  Receive Date: 20080530
  Receipt Date: 20080520
  Transmission Date: 20081010
  Serious: Yes (Hospitalization, Other)
  Sender: FDA-Public Use
  Company Number: BR-PFIZER INC-2007096120

PATIENT
  Sex: Male

DRUGS (2)
  1. CITALOR [Suspect]
     Route: 048
  2. SUSTRATE [Concomitant]
     Route: 048

REACTIONS (2)
  - DIABETES MELLITUS [None]
  - VASCULAR GRAFT [None]
